FAERS Safety Report 17329948 (Version 1)
Quarter: 2020Q1

REPORT INFORMATION
  Report Type: Spontaneous
  Country: US (occurrence: US)
  Receive Date: 20200127
  Receipt Date: 20200127
  Transmission Date: 20200409
  Serious: Yes (Life-Threatening, Disabling)
  Sender: FDA-Public Use
  Company Number: None

PATIENT
  Age: 33 Year
  Sex: Female
  Weight: 127.8 kg

DRUGS (4)
  1. JUNEL FE 1/20 [Suspect]
     Active Substance: ETHINYL ESTRADIOL\NORETHINDRONE ACETATE
     Indication: MENORRHAGIA
     Dates: start: 20180105, end: 20191205
  2. LOVENOX [Concomitant]
     Active Substance: ENOXAPARIN SODIUM
  3. WARFARIN [Concomitant]
     Active Substance: WARFARIN
  4. JUNEL FE 1/20 [Suspect]
     Active Substance: ETHINYL ESTRADIOL\NORETHINDRONE ACETATE
     Indication: CONTRACEPTION
     Dates: start: 20180105, end: 20191205

REACTIONS (5)
  - Product substitution issue [None]
  - Thrombosis [None]
  - Cardiomegaly [None]
  - Dyspnoea [None]
  - Chest pain [None]

NARRATIVE: CASE EVENT DATE: 20191205
